FAERS Safety Report 15900935 (Version 1)
Quarter: 2019Q1

REPORT INFORMATION
  Report Type: Spontaneous
  Country: FR (occurrence: FR)
  Receive Date: 20190201
  Receipt Date: 20190201
  Transmission Date: 20190417
  Serious: Yes (Hospitalization)
  Sender: FDA-Public Use
  Company Number: FR-TEVA-2019-FR-1007964

PATIENT
  Age: 42 Year
  Sex: Female

DRUGS (4)
  1. LYRICA [Suspect]
     Active Substance: PREGABALIN
     Route: 048
  2. AVONEX [Suspect]
     Active Substance: INTERFERON BETA-1A
     Route: 030
  3. FLUOXETINE (CHLORHYDRATE DE) [Suspect]
     Active Substance: FLUOXETINE HYDROCHLORIDE
     Route: 048
  4. TYSABRI [Suspect]
     Active Substance: NATALIZUMAB
     Indication: MULTIPLE SCLEROSIS
     Route: 041
     Dates: start: 200806, end: 201005

REACTIONS (1)
  - Lung adenocarcinoma [Recovered/Resolved]

NARRATIVE: CASE EVENT DATE: 2009
